FAERS Safety Report 24005090 (Version 1)
Quarter: 2024Q2

REPORT INFORMATION
  Report Type: Spontaneous
  Country: US (occurrence: US)
  Receive Date: 20240624
  Receipt Date: 20240624
  Transmission Date: 20240717
  Serious: Yes (Death, Life-Threatening, Other)
  Sender: FDA-Public Use
  Company Number: US-PFIZER INC-PV202400078511

PATIENT
  Age: 67 Year
  Sex: Male

DRUGS (1)
  1. ADALIMUMAB [Suspect]
     Active Substance: ADALIMUMAB\ISOPROPYL ALCOHOL
     Indication: Psoriasis
     Dosage: MISTAKENLY TAKEN THREE DOSES WITHIN ONE WEEK RATHER THAN ONE DOSE EVERY TWO WEEKS AS PRESCRIBED

REACTIONS (3)
  - Pneumonia legionella [Fatal]
  - Pneumonia necrotising [Fatal]
  - Incorrect dose administered [Unknown]
